FAERS Safety Report 9882820 (Version 2)
Quarter: 2014Q1

REPORT INFORMATION
  Report Type: Spontaneous
  Country: GB (occurrence: GB)
  Receive Date: 20140207
  Receipt Date: 20140214
  Transmission Date: 20141002
  Serious: Yes (Other)
  Sender: FDA-Public Use
  Company Number: GB-ASTRAZENECA-2014SE05794

PATIENT
  Age: 28336 Day
  Sex: Male
  Weight: 99.9 kg

DRUGS (2)
  1. ZOLADEX LA [Suspect]
     Indication: PROSTATE CANCER
     Route: 058
     Dates: start: 20131213
  2. ZOLADEX LA [Suspect]
     Indication: PROSTATE CANCER
     Route: 058
     Dates: start: 20140101

REACTIONS (2)
  - Overdose [Unknown]
  - Inappropriate schedule of drug administration [Unknown]
